FAERS Safety Report 7981262-0 (Version None)
Quarter: 2011Q4

REPORT INFORMATION
  Report Type: 
  Country: None (occurrence: None)
  Receive Date: 20111129
  Receipt Date: 20110519
  Transmission Date: 20120403
  Serious: No
  Sender: FDA-Public Use
  Company Number: AUR-APU-2011-01689

PATIENT
  Age: 61 Year
  Sex: Female

DRUGS (1)
  1. MELOXICAM [Suspect]
     Indication: NECK PAIN
     Dosage: (1 IN 1 D)
     Dates: start: 20100301, end: 20110511

REACTIONS (1)
  - DRUG INEFFECTIVE [None]
